FAERS Safety Report 7343034-X (Version None)
Quarter: 2011Q1

REPORT INFORMATION
  Report Type: 
  Country: None (occurrence: None)
  Receive Date: 20110310
  Receipt Date: 20110301
  Transmission Date: 20110831
  Serious: No
  Sender: FDA-Public Use
  Company Number: CN-JNJFOC-20110303609

PATIENT
  Age: 69 Year
  Sex: Male

DRUGS (4)
  1. LOXONIN [Concomitant]
     Indication: BACK PAIN
     Route: 065
  2. DURAGESIC-100 [Suspect]
     Indication: BACK PAIN
     Route: 062
  3. DURAGESIC-100 [Suspect]
     Indication: PAIN
     Route: 062
  4. LOXONIN [Concomitant]
     Indication: PAIN
     Route: 065

REACTIONS (2)
  - PAIN [None]
  - DRUG PRESCRIBING ERROR [None]
